FAERS Safety Report 8101692-6 (Version None)
Quarter: 2012Q1

REPORT INFORMATION
  Report Type: 
  Country: None (occurrence: None)
  Receive Date: 20120129
  Receipt Date: 20111012
  Transmission Date: 20120608
  Serious: No
  Sender: FDA-Public Use
  Company Number: US-ABBOTT-11P-163-0863517-00

PATIENT
  Age: 25 Year
  Sex: Male

DRUGS (5)
  1. METHADONE HCL [Concomitant]
     Indication: PAIN
     Dosage: TAPERING OFF
  2. VALIUM [Concomitant]
     Indication: PRODUCT USED FOR UNKNOWN INDICATION
  3. REMERON [Concomitant]
     Indication: INSOMNIA
     Dosage: ONE DAILY AT BEDTIME
  4. ASCORBIC ACID [Concomitant]
     Indication: PRODUCT USED FOR UNKNOWN INDICATION
     Dosage: DAILY
  5. HUMIRA [Suspect]
     Indication: CROHN'S DISEASE
     Dates: start: 20110801

REACTIONS (1)
  - HEADACHE [None]
